FAERS Safety Report 10517801 (Version 1)
Quarter: 2014Q4

REPORT INFORMATION
  Report Type: Report from Study
  Country: GR (occurrence: GR)
  Receive Date: 20141015
  Receipt Date: 20141015
  Transmission Date: 20150528
  Serious: Yes (Other)
  Sender: FDA-Public Use
  Company Number: GR-ORION CORPORATION ORION PHARMA-ENTC2014-0367

PATIENT
  Age: 64 Year
  Sex: Male

DRUGS (3)
  1. STALEVO [Suspect]
     Active Substance: CARBIDOPA\ENTACAPONE\LEVODOPA
     Indication: PARKINSON^S DISEASE
     Route: 065
  2. MADOPAR [Suspect]
     Active Substance: BENSERAZIDE HYDROCHLORIDE\LEVODOPA
     Dosage: 125
     Route: 065
  3. MIRAPEXIN [Suspect]
     Active Substance: PRAMIPEXOLE
     Route: 065

REACTIONS (1)
  - Parkinson^s disease [Unknown]
